APPROVED DRUG PRODUCT: TORNALATE
Active Ingredient: BITOLTEROL MESYLATE
Strength: 0.37MG/INH
Dosage Form/Route: AEROSOL, METERED;INHALATION
Application: N018770 | Product #001
Applicant: SANOFI AVENTIS US LLC
Approved: Dec 28, 1984 | RLD: No | RS: No | Type: DISCN